FAERS Safety Report 10626363 (Version 1)
Quarter: 2014Q4

REPORT INFORMATION
  Report Type: Spontaneous
  Country: NO (occurrence: NO)
  Receive Date: 20141204
  Receipt Date: 20141204
  Transmission Date: 20150529
  Serious: Yes (Hospitalization, Disabling)
  Sender: FDA-Public Use
  Company Number: NO-OTSUKA-US-2014-14299

PATIENT

DRUGS (11)
  1. EMEND [Suspect]
     Active Substance: APREPITANT
     Indication: NAUSEA
     Dosage: 125 MG MILLIGRAM(S), QD
     Route: 048
     Dates: start: 20140523, end: 20140523
  2. SENDOXAN [Concomitant]
     Active Substance: CYCLOPHOSPHAMIDE
     Indication: PRODUCT USED FOR UNKNOWN INDICATION
     Dosage: UNK
     Route: 065
  3. KETORAX [Concomitant]
     Active Substance: KETOBEMIDONE HYDROCHLORIDE
     Indication: PRODUCT USED FOR UNKNOWN INDICATION
     Dosage: UNK
     Route: 065
  4. MESNA. [Concomitant]
     Active Substance: MESNA
     Indication: PRODUCT USED FOR UNKNOWN INDICATION
     Dosage: UNK
     Route: 065
  5. EPINAT [Concomitant]
     Indication: PRODUCT USED FOR UNKNOWN INDICATION
     Dosage: UNK
     Route: 065
  6. AFIPRAN [Concomitant]
     Indication: PRODUCT USED FOR UNKNOWN INDICATION
     Dosage: UNK
     Route: 065
  7. BUSULFEX [Suspect]
     Active Substance: BUSULFAN
     Indication: PRODUCT USED FOR UNKNOWN INDICATION
     Dosage: UNK
     Route: 065
  8. ALLOPUR [Concomitant]
     Active Substance: ALLOPURINOL
     Indication: PRODUCT USED FOR UNKNOWN INDICATION
     Dosage: UNK
     Route: 065
  9. EMEND [Suspect]
     Active Substance: APREPITANT
     Dosage: 80 MG MILLIGRAM(S), QD
     Route: 048
     Dates: start: 20140524, end: 20140525
  10. ZOFRAN [Concomitant]
     Active Substance: ONDANSETRON HYDROCHLORIDE
     Indication: PRODUCT USED FOR UNKNOWN INDICATION
     Dosage: UNK
     Route: 065
  11. CYCLOPHOSPHAMIDE. [Suspect]
     Active Substance: CYCLOPHOSPHAMIDE
     Indication: PRODUCT USED FOR UNKNOWN INDICATION
     Dosage: UNK
     Route: 065

REACTIONS (4)
  - Haemorrhage [Recovered/Resolved with Sequelae]
  - Skin toxicity [Unknown]
  - Mucosal pain [Recovered/Resolved with Sequelae]
  - Mucosal inflammation [Recovered/Resolved with Sequelae]

NARRATIVE: CASE EVENT DATE: 2014
